FAERS Safety Report 13139211 (Version 3)
Quarter: 2017Q1

REPORT INFORMATION
  Report Type: Spontaneous
  Country: US (occurrence: US)
  Receive Date: 20170123
  Receipt Date: 20170313
  Transmission Date: 20170428
  Serious: Yes (Other)
  Sender: FDA-Public Use
  Company Number: US-BAYER-2017-011843

PATIENT
  Age: 20 Year
  Weight: 53.5 kg

DRUGS (2)
  1. GADAVIST [Suspect]
     Active Substance: GADOBUTROL
     Dosage: UNK UNK, ONCE
     Dates: start: 20161222, end: 20161222
  2. GADAVIST [Suspect]
     Active Substance: GADOBUTROL
     Dosage: 5.4 ML, ONCE
     Dates: start: 20161228, end: 20161228

REACTIONS (8)
  - Vomiting [None]
  - Respiratory distress [None]
  - Rash [None]
  - Throat irritation [None]
  - Nausea [None]
  - Dyspnoea [None]
  - Hot flush [None]
  - Nausea [None]

NARRATIVE: CASE EVENT DATE: 20161222
